FAERS Safety Report 6535890-X (Version None)
Quarter: 2010Q1

REPORT INFORMATION
  Report Type: 
  Country: None (occurrence: None)
  Receive Date: 20100113
  Receipt Date: 20100105
  Transmission Date: 20100710
  Serious: Yes (Other)
  Sender: FDA-Public Use
  Company Number: GB-TEVA-194010ISR

PATIENT
  Age: 68 Year
  Sex: Male
  Weight: 78 kg

DRUGS (9)
  1. FUROSEMIDE [Suspect]
  2. FUROSEMIDE [Suspect]
  3. LANSOPRAZOLE [Suspect]
  4. ACETYLSALICYLIC ACID [Suspect]
  5. ACIPIMOX [Suspect]
  6. DIGOXIN [Suspect]
  7. PERINDOPRIL ERBUMINE [Suspect]
  8. AMIODARONE HCL [Suspect]
  9. BISOPROLOL FUMARATE [Suspect]

REACTIONS (14)
  - ATRIAL FIBRILLATION [None]
  - CARDIAC MURMUR [None]
  - DISSOCIATION [None]
  - DIZZINESS [None]
  - DRUG INEFFECTIVE [None]
  - DYSPNOEA [None]
  - DYSPNOEA EXERTIONAL [None]
  - FATIGUE [None]
  - FEELING ABNORMAL [None]
  - LEFT VENTRICULAR DYSFUNCTION [None]
  - OEDEMA PERIPHERAL [None]
  - PARAESTHESIA [None]
  - VENOUS PRESSURE JUGULAR INCREASED [None]
  - VENTRICULAR TACHYCARDIA [None]
